FAERS Safety Report 24697228 (Version 1)
Quarter: 2024Q4

REPORT INFORMATION
  Report Type: Report from Study
  Country: DE (occurrence: DE)
  Receive Date: 20241204
  Receipt Date: 20241204
  Transmission Date: 20250114
  Serious: Yes (Death, Hospitalization, Other)
  Sender: BAXTER
  Company Number: None

PATIENT
  Sex: Female

DRUGS (43)
  1. CYCLOPHOSPHAMIDE [Suspect]
     Active Substance: CYCLOPHOSPHAMIDE
     Indication: B-cell lymphoma
     Dosage: 1140 MG, EVERY 2 WEEKS, LAST CYCLE: 28/OCT/2016
     Route: 041
     Dates: start: 20160927, end: 20161124
  2. DOXORUBICIN HYDROCHLORIDE [Suspect]
     Active Substance: DOXORUBICIN HYDROCHLORIDE
     Indication: B-cell lymphoma
     Dosage: 75 MG EVERY 2 WEEKS, LAST CYCLE: 28/OCT/2016
     Route: 041
     Dates: start: 20160927, end: 20161124
  3. FILGRASTIM [Suspect]
     Active Substance: FILGRASTIM
     Dosage: 30 MIO IE
     Route: 059
     Dates: start: 20161127
  4. FILGRASTIM [Suspect]
     Active Substance: FILGRASTIM
     Indication: B-cell lymphoma
     Dosage: 30 MIO IE
     Route: 059
     Dates: start: 20161031, end: 20161107
  5. LENOGRASTIM [Suspect]
     Active Substance: LENOGRASTIM
     Indication: B-cell lymphoma
     Dosage: 34 MIO IE
     Route: 059
     Dates: start: 20161019
  6. LENOGRASTIM [Suspect]
     Active Substance: LENOGRASTIM
     Indication: B-cell lymphoma
     Dosage: 34 MIO IE
     Route: 059
     Dates: start: 20161019
  7. MABTHERA [Suspect]
     Active Substance: RITUXIMAB
     Indication: B-cell lymphoma
     Dosage: MOST RECENT CYCLE NUMBER: 3, SUBSEQUENT RITUXIMAB DOSE GIVEN PRIOR TO SAE: 12/OCT/2016 DATE LAST RIT
     Route: 041
     Dates: start: 20160926
  8. NEULASTA [Suspect]
     Active Substance: PEGFILGRASTIM
     Indication: B-cell lymphoma
     Dosage: DATE LAST CYCLE OF CHLIP STARTED PRIOR TO SAE: 12/OCT/2016
     Route: 059
     Dates: start: 20161014
  9. NEULASTA [Suspect]
     Active Substance: PEGFILGRASTIM
     Dosage: 30 MIO IE/0,5ML,
     Route: 059
     Dates: start: 20161127
  10. PREDNISONE [Suspect]
     Active Substance: PREDNISONE
     Indication: B-cell lymphoma
     Dosage: 100 MG, EVERY DAY, LAST CYCLE: 28/OCT/2016
     Route: 065
     Dates: start: 20160907, end: 20161128
  11. PEGFILGRASTIM [Suspect]
     Active Substance: PEGFILGRASTIM
     Indication: B-cell lymphoma
     Dosage: DAILY DOSE: 6 MG MILLGRAM(S) EVERY 2 WEEKS
     Route: 059
     Dates: start: 20161014
  12. VINCRISTINE [Suspect]
     Active Substance: VINCRISTINE
     Indication: B-cell lymphoma
     Dosage: DATE LAST CYCLE OF CHLIP STARTED PRIOR TO SAE: 12.10.16 LAST CYCLE: 28/OCT/2016
     Route: 041
     Dates: start: 20160927, end: 20161124
  13. FUROSEMIDE [Concomitant]
     Active Substance: FUROSEMIDE
     Indication: Fluid retention
     Dosage: 2040 MILLIGRAM, AS NECESSARY (2040 MILLIGRAM, FOR 10 DAYS)
     Route: 041
     Dates: start: 20061116, end: 20161125
  14. ACYCLOVIR [Concomitant]
     Active Substance: ACYCLOVIR
     Indication: Infection prophylaxis
     Dosage: 400 MILLIGRAM, BID
     Route: 065
     Dates: start: 20161027
  15. ACYCLOVIR [Concomitant]
     Active Substance: ACYCLOVIR
     Indication: Infection prophylaxis
     Dosage: DAILY DOSE: 1600 MG MILLIGRAM(S) EVERY DAY
     Route: 065
     Dates: start: 20161027
  16. ALLEVYN [Concomitant]
     Indication: Skin ulcer
     Dosage: UNK
     Route: 065
     Dates: start: 20161115
  17. ALLOPURINOL [Concomitant]
     Active Substance: ALLOPURINOL
     Dosage: 300 MILLIGRAM, QD
     Route: 065
     Dates: start: 20161114
  18. AMPHOTERICIN B [Concomitant]
     Active Substance: AMPHOTERICIN B
     Indication: Infection prophylaxis
     Dosage: 1 PIPETTE
     Dates: start: 20161017
  19. AMPICILLIN [Concomitant]
     Active Substance: AMPICILLIN
     Indication: Infection prophylaxis
     Dosage: DAILY DOSE: 1500 MG MILLIGRAM(S) EVERY DAY
     Route: 065
     Dates: start: 20160913
  20. ALLOPURINOL [Concomitant]
     Active Substance: ALLOPURINOL
     Indication: Prophylaxis
     Dosage: DAILY DOSE: 300 MG MILLIGRAM(S) EVERY DAY
     Route: 065
     Dates: start: 20160906
  21. CHOLECALCIFEROL [Concomitant]
     Active Substance: CHOLECALCIFEROL
     Indication: Vitamin supplementation
     Dosage: 20000IE, 1-0-0, ONLY FRIDAY
     Route: 065
     Dates: start: 20161027
  22. DEXPANTHENOL [Concomitant]
     Active Substance: DEXPANTHENOL
     Indication: Skin ulcer
     Dosage: PRN ATLEAST BID
     Dates: start: 20161114
  23. DULOXETINE [Concomitant]
     Active Substance: DULOXETINE
     Indication: Depression
     Dosage: DAILY DOSE: 90 MG MILLIGRAM(S) EVERY DAY
     Route: 065
     Dates: start: 20160901
  24. ENOXAPARIN SODIUM [Concomitant]
     Active Substance: ENOXAPARIN SODIUM
     Indication: Thrombosis prophylaxis
     Dosage: 5 MILLILITER, QD
     Route: 059
     Dates: start: 20160907, end: 20160929
  25. ENOXAPARIN SODIUM [Concomitant]
     Active Substance: ENOXAPARIN SODIUM
     Indication: Thrombosis prophylaxis
     Dosage: DAILY DOSE: 5 ML MILLILITRE(S) EVERY DAY
     Route: 059
     Dates: start: 20160907, end: 20160929
  26. FOLIC ACID [Concomitant]
     Active Substance: FOLIC ACID
     Indication: Prophylaxis
     Dosage: 5 MILLIGRAM, 2 TIMES/WK
     Route: 065
     Dates: start: 20161027
  27. FOLIC ACID [Concomitant]
     Active Substance: FOLIC ACID
     Dosage: 5 MG, 1-0-0, ONLY MO+THU
     Route: 065
  28. LEVOFLOXACIN [Concomitant]
     Active Substance: LEVOFLOXACIN
     Indication: Infection prophylaxis
     Dosage: DAILY DOSE: 500 MG MILLIGRAM(S) EVERY 3 DAY
     Route: 065
     Dates: start: 20161017, end: 20161019
  29. POLYETHYLENE GLYCOLS [Concomitant]
     Active Substance: POLYETHYLENE GLYCOLS
     Indication: Constipation
     Dosage: 1-1-0 BAGS
     Route: 065
     Dates: start: 20161117
  30. METOCLOPRAMIDE [Concomitant]
     Active Substance: METOCLOPRAMIDE
     Indication: Nausea
     Dosage: 10 MG
     Route: 065
  31. METOPROLOL SUCCINATE [Concomitant]
     Active Substance: METOPROLOL SUCCINATE
     Indication: Hypertension
     Dosage: DAILY DOSE: 95 MG MILLIGRAM(S) EVERY DAY
     Route: 065
     Dates: start: 20160901
  32. MIRTAZAPINE [Concomitant]
     Active Substance: MIRTAZAPINE
     Indication: Depression
     Dosage: DAILY DOSE: 15 MG MILLIGRAM(S) EVERY DAY
     Route: 065
     Dates: start: 20160901
  33. PANTOPRAZOLE SODIUM [Concomitant]
     Active Substance: PANTOPRAZOLE SODIUM
     Dosage: DAILY DOSE: 40 MG MILLIGRAM(S) EVERY DAY
     Route: 065
     Dates: start: 20161107
  34. PIPERACILLIN [Concomitant]
     Active Substance: PIPERACILLIN
     Indication: Oropharyngeal pain
     Dosage: DAILY DOSE: 12 G GRAM(S) EVERY DAY
     Route: 041
     Dates: start: 20161019
  35. RIVAROXABAN [Concomitant]
     Active Substance: RIVAROXABAN
     Indication: Oedema peripheral
     Dosage: DAILY DOSE: 15 MG MILLIGRAM(S) EVERY DAY
     Route: 065
     Dates: start: 20161012
  36. SULFAMETHOXAZOLE\TRIMETHOPRIM [Concomitant]
     Active Substance: SULFAMETHOXAZOLE\TRIMETHOPRIM
     Indication: Infection prophylaxis
     Dosage: 960 MG, 1-0-1, ONLY MO+THU
     Route: 065
     Dates: start: 20161027
  37. LEVOFLOXACIN [Concomitant]
     Active Substance: LEVOFLOXACIN
     Dosage: UNK
     Route: 065
  38. TAZOBACTAM [Concomitant]
     Active Substance: TAZOBACTAM
     Indication: Oropharyngeal pain
     Dosage: DAILY DOSE: 1500 MG MILLIGRAM(S) EVERY DAY
     Route: 041
     Dates: start: 20161019
  39. TORSEMIDE [Concomitant]
     Active Substance: TORSEMIDE
     Dosage: 20 MILLIGRAM, QD
     Route: 065
  40. TORSEMIDE [Concomitant]
     Active Substance: TORSEMIDE
     Dosage: 10 MG, EVERY DAY
     Route: 065
     Dates: start: 20161012
  41. TORSEMIDE [Concomitant]
     Active Substance: TORSEMIDE
     Indication: Cardiac failure
     Dosage: 5 MG 2 TIMES A DAY(S) FOR 41 DAY(S), 20MG MILLIGRAM(S), 1 TIMES A DAY(S)
     Route: 065
     Dates: start: 20160901
  42. TORSEMIDE [Concomitant]
     Active Substance: TORSEMIDE
     Dosage: UNK
     Route: 065
     Dates: start: 20160901
  43. ZOPICLONE [Concomitant]
     Active Substance: ZOPICLONE
     Indication: Sleep disorder
     Dosage: 7.5 MG, 0-0-0-1
     Route: 065
     Dates: start: 20161107

REACTIONS (15)
  - Gait inability [Unknown]
  - Loss of consciousness [Unknown]
  - Spinal fracture [Not Recovered/Not Resolved]
  - Dehydration [Recovered/Resolved]
  - Dysphagia [Not Recovered/Not Resolved]
  - Hypokalaemia [Recovered/Resolved]
  - Weight decreased [Not Recovered/Not Resolved]
  - Streptococcal infection [Recovered/Resolved]
  - Anaemia [Recovered/Resolved]
  - Constipation [Recovered/Resolved]
  - Fatigue [Not Recovered/Not Resolved]
  - Asthenia [Unknown]
  - Leukopenia [Recovered/Resolved]
  - Pneumonia [Fatal]
  - Thrombocytopenia [Recovered/Resolved]

NARRATIVE: CASE EVENT DATE: 20161001
